FAERS Safety Report 15580159 (Version 1)
Quarter: 2018Q4

REPORT INFORMATION
  Report Type: Spontaneous
  Country: SI (occurrence: SI)
  Receive Date: 20181102
  Receipt Date: 20181102
  Transmission Date: 20190205
  Serious: Yes (Hospitalization, Other)
  Sender: FDA-Public Use
  Company Number: SI-BAYER-2018-198191

PATIENT
  Age: 47 Year
  Sex: Female

DRUGS (6)
  1. STIVARGA [Suspect]
     Active Substance: REGORAFENIB
     Indication: COLON CANCER METASTATIC
     Dosage: 160 MG DAILY
     Dates: start: 20180103, end: 20180131
  2. STIVARGA [Suspect]
     Active Substance: REGORAFENIB
     Indication: COLON CANCER METASTATIC
     Dosage: UNK
     Dates: start: 20180302, end: 2018
  3. STIVARGA [Suspect]
     Active Substance: REGORAFENIB
     Indication: COLON CANCER METASTATIC
     Dosage: UNK
     Dates: start: 20180620, end: 2018
  4. STIVARGA [Suspect]
     Active Substance: REGORAFENIB
     Indication: COLON CANCER METASTATIC
     Dosage: DAILY DOSE 120 MG
     Dates: start: 20171027
  5. STIVARGA [Suspect]
     Active Substance: REGORAFENIB
     Indication: COLON CANCER METASTATIC
     Dosage: 160 MG DAILY
     Dates: start: 20171129
  6. STIVARGA [Suspect]
     Active Substance: REGORAFENIB
     Indication: COLON CANCER METASTATIC
     Dosage: UNK
     Dates: start: 20180817

REACTIONS (16)
  - Dyspnoea [None]
  - Aphthous ulcer [None]
  - Weight decreased [Recovering/Resolving]
  - Arthralgia [None]
  - Chills [None]
  - Cardiac failure [None]
  - Mucosal inflammation [None]
  - Metastases to liver [None]
  - Oral pain [None]
  - Aphthous ulcer [None]
  - Anxiety [None]
  - Hyperhidrosis [None]
  - Osteonecrosis [None]
  - Colon cancer metastatic [None]
  - Fear [None]
  - Fatigue [None]

NARRATIVE: CASE EVENT DATE: 2018
